FAERS Safety Report 24014903 (Version 1)
Quarter: 2024Q2

REPORT INFORMATION
  Report Type: Spontaneous
  Country: US (occurrence: US)
  Receive Date: 20240626
  Receipt Date: 20240626
  Transmission Date: 20240715
  Serious: No
  Sender: FDA-Public Use
  Company Number: US-JNJFOC-20240625427

PATIENT

DRUGS (1)
  1. ZYRTEC [Suspect]
     Active Substance: CETIRIZINE HYDROCHLORIDE
     Indication: Product used for unknown indication
     Route: 065

REACTIONS (12)
  - Somnolence [Unknown]
  - Dry mouth [Unknown]
  - Dizziness [Unknown]
  - Headache [Unknown]
  - Nausea [Unknown]
  - Insomnia [Unknown]
  - Dyspnoea [Unknown]
  - Dysphagia [Unknown]
  - Oropharyngeal pain [Unknown]
  - Cough [Unknown]
  - Constipation [Unknown]
  - Anxiety [Unknown]
